FAERS Safety Report 7437710-8 (Version None)
Quarter: 2011Q2

REPORT INFORMATION
  Report Type: 
  Country: None (occurrence: None)
  Receive Date: 20110426
  Receipt Date: 20110420
  Transmission Date: 20111010
  Serious: Yes (Hospitalization, Other)
  Sender: FDA-Public Use
  Company Number: HU-ROCHE-772422

PATIENT
  Sex: Female
  Weight: 116 kg

DRUGS (14)
  1. METHYLPREDNISOLONE [Suspect]
     Indication: RHEUMATOID ARTHRITIS
     Route: 048
     Dates: start: 20050101, end: 20110301
  2. TOCILIZUMAB [Suspect]
     Indication: RHEUMATOID ARTHRITIS
     Route: 042
     Dates: start: 20101215, end: 20110318
  3. LISINOPRIL [Concomitant]
     Indication: HYPERTENSION
     Dosage: 2X 10MG DAILY
     Route: 048
     Dates: start: 20070101
  4. FRUSEMID [Concomitant]
     Indication: HYPERTENSION
     Route: 048
     Dates: start: 20050101
  5. ALPRAZOLAM [Concomitant]
     Indication: DEPRESSION
     Route: 048
     Dates: start: 20050101
  6. HUMAN ACTRAPID [Concomitant]
     Indication: DIABETES MELLITUS
     Dosage: R: 24E D:22E E: 22E DAILY
     Route: 058
     Dates: start: 20060101
  7. INSULATARD [Concomitant]
     Dosage: E: 22E DAILY
     Route: 058
     Dates: start: 20060101
  8. AMLODIPINE [Concomitant]
     Indication: HYPERTENSION
     Dosage: 2X5MG DAILY
     Route: 048
     Dates: start: 20070101
  9. FOLIC ACID [Concomitant]
     Route: 048
     Dates: start: 20100920
  10. NAPROXEN [Concomitant]
     Route: 048
     Dates: start: 20110303
  11. KALIUM [Concomitant]
     Route: 048
     Dates: start: 20080101
  12. SIMVASTATIN [Concomitant]
     Indication: HYPERLIPIDAEMIA
     Route: 048
     Dates: start: 20100112
  13. NEBIVOLOL HCL [Concomitant]
     Indication: HYPERTENSION
     Route: 048
     Dates: start: 20050101
  14. METFORMIN [Concomitant]
     Indication: DIABETES MELLITUS
     Route: 048
     Dates: start: 20010101

REACTIONS (4)
  - BACK PAIN [None]
  - LIVER FUNCTION TEST ABNORMAL [None]
  - VIRAL INFECTION [None]
  - ERYSIPELAS [None]
